FAERS Safety Report 5334266-0 (Version None)
Quarter: 2007Q2

REPORT INFORMATION
  Report Type: 
  Country: None (occurrence: None)
  Receive Date: 20070525
  Receipt Date: 20070521
  Transmission Date: 20071010
  Serious: Yes (Life-Threatening, Hospitalization, Other)
  Sender: FDA-Public Use
  Company Number: PHHO2007GB05090

PATIENT
  Age: 72 Year
  Sex: Female

DRUGS (13)
  1. LETROZOLE [Suspect]
     Indication: BREAST CANCER METASTATIC
     Dosage: NO TREATMENT
     Dates: start: 20070309, end: 20070320
  2. LETROZOLE [Suspect]
     Dosage: 2.5 MG, QD
     Route: 048
     Dates: start: 20060803, end: 20070308
  3. EXEMESTANE [Concomitant]
     Indication: BREAST CANCER
  4. ACYCLOVIR [Concomitant]
  5. CYCLIZINE [Concomitant]
  6. DOMPERIDONE [Concomitant]
  7. VITAMIN CAP [Concomitant]
  8. BONJELA [Concomitant]
  9. PARACETAMOL [Concomitant]
  10. MORPHINE SULFATE [Concomitant]
  11. LAXATIVES [Concomitant]
  12. NYSTATIN [Concomitant]
  13. CIPROFLOXACIN [Concomitant]

REACTIONS (11)
  - ABDOMINAL PAIN [None]
  - ASPARTATE AMINOTRANSFERASE INCREASED [None]
  - BLOOD AMYLASE INCREASED [None]
  - CHEST PAIN [None]
  - CLOSTRIDIAL INFECTION [None]
  - DEHYDRATION [None]
  - LIP ULCERATION [None]
  - PANCREATITIS [None]
  - PYREXIA [None]
  - URINARY TRACT INFECTION [None]
  - URINE OUTPUT DECREASED [None]
